FAERS Safety Report 10684461 (Version 2)
Quarter: 2015Q1

REPORT INFORMATION
  Report Type: Spontaneous
  Country: US (occurrence: None)
  Receive Date: 20141229
  Receipt Date: 20150121
  Transmission Date: 20150720
  Serious: Yes (Other)
  Sender: FDA-Public Use
  Company Number: 2014-US-013347

PATIENT
  Age: 34 Year
  Sex: Female
  Weight: 46.7 kg

DRUGS (17)
  1. KETOROLAC TROMETHAMINE. [Concomitant]
     Active Substance: KETOROLAC TROMETHAMINE
  2. DURAGESIC (FENTANYL) [Concomitant]
  3. MARINOL [Concomitant]
     Active Substance: DRONABINOL
  4. NUVARING (ETHINYLESTRADILOL, ETONOGESTREL) [Concomitant]
  5. DIHYDROERGOTAMINE (DIHYDROERGOTAMINE MESILATE) [Concomitant]
  6. XYREM [Suspect]
     Active Substance: SODIUM OXYBATE
     Indication: NARCOLEPSY
     Route: 048
     Dates: start: 200803, end: 2008
  7. PROPRANOLOL (PROPRANOLOL HYDROCHLORIDE) [Concomitant]
  8. KLONOPIN [Concomitant]
     Active Substance: CLONAZEPAM
  9. CYCLOBENZAPRINE HCL (CYCLOBENZAPRINE HYDROCHLORIDE) [Concomitant]
  10. METHYLPHENIDATE - SLOW RELEASE [Concomitant]
  11. METHADONE [Concomitant]
     Active Substance: METHADONE HYDROCHLORIDE
  12. PYRIDOSTIGMINE [Concomitant]
     Active Substance: PYRIDOSTIGMINE
  13. ZOFRAN (ONDANSETRON HYDROCHLORIDE) [Concomitant]
  14. MORPHINE SULFATE. [Concomitant]
     Active Substance: MORPHINE SULFATE
  15. ZANAFLEX [Concomitant]
     Active Substance: TIZANIDINE HYDROCHLORIDE
  16. ADDERALL [Concomitant]
     Active Substance: AMPHETAMINE ASPARTATE\AMPHETAMINE SULFATE\DEXTROAMPHETAMINE SACCHARATE\DEXTROAMPHETAMINE SULFATE
  17. METHYLPHENIDATE HYDROCHLORIDE (METHYLPHENIDATE HYDROCHLORIDE) [Concomitant]

REACTIONS (8)
  - Post-traumatic neck syndrome [None]
  - Vomiting [None]
  - Speech disorder [None]
  - Arnold-Chiari malformation [None]
  - Abasia [None]
  - Impaired gastric emptying [None]
  - Bradycardia [None]
  - Dehydration [None]

NARRATIVE: CASE EVENT DATE: 201412
